FAERS Safety Report 25865590 (Version 3)
Quarter: 2025Q4

REPORT INFORMATION
  Report Type: Spontaneous
  Country: US (occurrence: US)
  Receive Date: 20250930
  Receipt Date: 20251231
  Transmission Date: 20260118
  Serious: No
  Sender: SANOFI AVENTIS
  Company Number: US-SA-2025SA291187

PATIENT
  Age: 66 Year
  Sex: Female
  Weight: 74.376 kg

DRUGS (25)
  1. DUPIXENT [Suspect]
     Active Substance: DUPILUMAB
     Indication: Chronic obstructive pulmonary disease
     Dosage: 300 MG, QOW
     Route: 058
  2. FLUBLOK [Concomitant]
     Active Substance: INFLUENZA VIRUS VACCINE
  3. ESTRADIOL [Concomitant]
     Active Substance: ESTRADIOL
  4. LIPITOR [Concomitant]
     Active Substance: ATORVASTATIN CALCIUM
  5. VITAMIN D3 [Concomitant]
     Active Substance: CHOLECALCIFEROL
  6. ASPIRIN [Concomitant]
     Active Substance: ASPIRIN
  7. FLONASE ALLERGY RELIEF [Concomitant]
     Active Substance: FLUTICASONE PROPIONATE
  8. ALBUTEROL SULFATE [Concomitant]
     Active Substance: ALBUTEROL SULFATE
  9. MAGNESIUM [Concomitant]
     Active Substance: MAGNESIUM
  10. POTASSIUM [Concomitant]
     Active Substance: POTASSIUM
  11. LOSARTAN POTASSIUM [Concomitant]
     Active Substance: LOSARTAN POTASSIUM
  12. HYDROCHLOROTHIAZIDE [Concomitant]
     Active Substance: HYDROCHLOROTHIAZIDE
  13. FAMOTIDINE [Concomitant]
     Active Substance: FAMOTIDINE
  14. ANORO ELLIPTA [Concomitant]
     Active Substance: UMECLIDINIUM BROMIDE\VILANTEROL TRIFENATATE
  15. TYLENOL [Concomitant]
     Active Substance: ACETAMINOPHEN
  16. CILOSTAZOL [Concomitant]
     Active Substance: CILOSTAZOL
  17. PLAVIX [Concomitant]
     Active Substance: CLOPIDOGREL BISULFATE
  18. AZITHROMYCIN [Concomitant]
     Active Substance: AZITHROMYCIN
  19. TEMAZEPAM [Concomitant]
     Active Substance: TEMAZEPAM
  20. ALBUTEROL\IPRATROPIUM [Concomitant]
     Active Substance: ALBUTEROL\IPRATROPIUM
  21. MIRALAX [Concomitant]
     Active Substance: POLYETHYLENE GLYCOL 3350
  22. NICODERM CQ [Concomitant]
     Active Substance: NICOTINE
     Dosage: 21 MG, QD
     Route: 062
  23. ALPRAZOLAM [Concomitant]
     Active Substance: ALPRAZOLAM
  24. ACETYLCYSTEINE [Concomitant]
     Active Substance: ACETYLCYSTEINE
  25. PROTONIX [Concomitant]
     Active Substance: PANTOPRAZOLE SODIUM

REACTIONS (5)
  - Illness [Unknown]
  - Viral infection [Recovering/Resolving]
  - Dyspnoea [Recovered/Resolved]
  - Nasopharyngitis [Recovering/Resolving]
  - Headache [Unknown]

NARRATIVE: CASE EVENT DATE: 20250901
